FAERS Safety Report 10017113 (Version 2)
Quarter: 2014Q1

REPORT INFORMATION
  Report Type: Report from Study
  Country: NO (occurrence: NO)
  Receive Date: 20140318
  Receipt Date: 20140318
  Transmission Date: 20141002
  Serious: Yes (Death, Life-Threatening, Hospitalization)
  Sender: FDA-Public Use
  Company Number: NO-009507513-1008USA01772

PATIENT
  Age: 73 Year
  Sex: Male
  Weight: 89 kg

DRUGS (10)
  1. SIMVASTATIN [Suspect]
     Indication: ACUTE CORONARY SYNDROME
     Dosage: 40 MG, QD
     Route: 048
     Dates: start: 20080523
  2. NOVOMIX [Concomitant]
     Dosage: 40 IE DAILY
     Route: 058
     Dates: start: 20060101
  3. FUROSEMIDE [Concomitant]
     Dosage: 40 MG DAILY
     Route: 048
     Dates: start: 20010101
  4. ZANIDIP [Concomitant]
     Dosage: 20 MG DAILY
     Route: 048
     Dates: start: 20080101
  5. CARVEDILOL [Concomitant]
     Dosage: 37.5 MG DAILY
     Route: 048
     Dates: start: 20060918
  6. GLUCOPHAGE [Concomitant]
     Dosage: 1000 MG DAILY
     Route: 048
     Dates: start: 20060101
  7. ALBYL-E [Concomitant]
     Dosage: 75 MG DAILY
     Route: 048
     Dates: start: 20010101
  8. SOMAC [Concomitant]
     Dosage: 40 MG DAILY
     Route: 048
     Dates: start: 20080101
  9. INSULATARD (INSULIN HUMAN, ISOPHANE) [Concomitant]
     Dosage: 60 IE DAILY
     Route: 058
     Dates: start: 20060101
  10. ASACOL [Concomitant]
     Dosage: 1600 MG DAILY
     Route: 048
     Dates: start: 20060101

REACTIONS (2)
  - Metastases to liver [Fatal]
  - Pancreatic carcinoma [Fatal]
